FAERS Safety Report 7473916-X (Version None)
Quarter: 2011Q2

REPORT INFORMATION
  Report Type: 
  Country: None (occurrence: None)
  Receive Date: 20110511
  Receipt Date: 20110509
  Transmission Date: 20111010
  Serious: Yes (Other)
  Sender: FDA-Public Use
  Company Number: US-CEPHALON-2011000764

PATIENT
  Sex: Male
  Weight: 73 kg

DRUGS (7)
  1. NUVIGIL [Suspect]
     Indication: SLEEP APNOEA SYNDROME
     Route: 048
     Dates: start: 20110215, end: 20110215
  2. REQUIP [Concomitant]
     Dates: start: 20110215
  3. LOPRESSOR [Concomitant]
     Indication: HYPERTENSION
  4. AMBIEN [Concomitant]
  5. MINOXIDIL [Concomitant]
     Indication: HYPERTENSION
  6. ZOCOR [Concomitant]
     Indication: BLOOD CHOLESTEROL
  7. NORCO [Concomitant]
     Indication: PAIN

REACTIONS (5)
  - MUSCLE SPASMS [None]
  - RESPIRATORY RATE INCREASED [None]
  - INSOMNIA [None]
  - AGITATION [None]
  - HYPOPNOEA [None]
